FAERS Safety Report 4362721-9 (Version None)
Quarter: 2004Q2

REPORT INFORMATION
  Report Type: 
  Country: None (occurrence: None)
  Receive Date: 20040518
  Receipt Date: 20040505
  Transmission Date: 20050107
  Serious: Yes (Other)
  Sender: FDA-Public Use
  Company Number: 2004031027

PATIENT
  Age: 59 Year
  Sex: Male

DRUGS (6)
  1. GEMFIBROZIL [Suspect]
     Indication: ILL-DEFINED DISORDER
     Dosage: 5 MG
  2. FENOFIBRATE [Suspect]
     Indication: ILL-DEFINED DISORDER
  3. PRAVASTATIN [Suspect]
     Indication: ILL-DEFINED DISORDER
  4. NICOTINIC ACID [Suspect]
     Indication: ILL-DEFINED DISORDER
  5. CERIVASTATIN (CERIVASTATIN) [Suspect]
     Indication: ILL-DEFINED DISORDER
  6. SIMVASTATIN [Suspect]
     Indication: ILL-DEFINED DISORDER
     Dosage: 5 MG

REACTIONS (4)
  - AGGRESSION [None]
  - FEELING ABNORMAL [None]
  - HOMICIDAL IDEATION [None]
  - IRRITABILITY [None]
